FAERS Safety Report 18507847 (Version 2)
Quarter: 2020Q4

REPORT INFORMATION
  Report Type: Report from Study
  Country: DE (occurrence: DE)
  Receive Date: 20201116
  Receipt Date: 20201127
  Transmission Date: 20210114
  Serious: Yes (Hospitalization, Other)
  Sender: FDA-Public Use
  Company Number: DE-TAKEDA-2020TUS049283

PATIENT
  Age: 51 Year
  Weight: 78 kg

DRUGS (15)
  1. IBUPROFEN. [Concomitant]
     Active Substance: IBUPROFEN
     Indication: POSTOPERATIVE ANALGESIA
     Dosage: 400 MILLIGRAM, TID
     Route: 048
     Dates: start: 20130308, end: 20130313
  2. ARCOXIA [Concomitant]
     Active Substance: ETORICOXIB
     Indication: ARTHROPATHY
     Dosage: UNK
     Route: 048
  3. PANTOZOLE [Concomitant]
     Active Substance: PANTOPRAZOLE SODIUM
     Indication: STRESS ULCER
     Dosage: 40 MILLIGRAM, QD
     Route: 048
     Dates: start: 20130308, end: 20130313
  4. ORTOTON [METHOCARBAMOL] [Concomitant]
     Active Substance: METHOCARBAMOL
     Indication: PAIN
     Dosage: UNK
     Route: 048
     Dates: start: 20200817, end: 20200818
  5. CORTISONE [Concomitant]
     Active Substance: CORTISONE
     Indication: LICHEN SCLEROSUS
     Dosage: 1 DOSAGE FORM
     Route: 061
     Dates: start: 20150108, end: 20151120
  6. PARACETAMOL [Concomitant]
     Active Substance: ACETAMINOPHEN
     Indication: PAIN
     Dosage: UNK
     Route: 048
     Dates: start: 20200817, end: 20200818
  7. NOVALGIN [CAFFEINE;PARACETAMOL;PROPYPHENAZONE] [Concomitant]
     Active Substance: ACETAMINOPHEN\CAFFEINE\PROPYPHENAZONE
     Dosage: 30 GTT DROPS, QID
     Route: 048
     Dates: start: 20130309, end: 20130313
  8. RECOMBINATE [Suspect]
     Active Substance: ANTIHEMOPHILIC FACTOR, HUMAN RECOMBINANT
     Indication: HAEMOPHILIA
     Dosage: 2000 INTERNATIONAL UNIT, QD
     Route: 042
     Dates: start: 20180507, end: 20200818
  9. IBUPROFEN. [Concomitant]
     Active Substance: IBUPROFEN
     Indication: PAIN
     Dosage: 600 MILLIGRAM
     Route: 048
     Dates: start: 20200817, end: 20200818
  10. ZINACEF [CEFUROXIME AXETIL] [Concomitant]
     Indication: INFECTION
     Dosage: 1.5 GRAM, QD
     Route: 042
     Dates: start: 20130308, end: 20130308
  11. SKINSEPT G [Concomitant]
     Indication: SKIN INFECTION
     Dosage: UNK
     Route: 061
     Dates: start: 20130308, end: 20130308
  12. NOVALGIN [CAFFEINE;PARACETAMOL;PROPYPHENAZONE] [Concomitant]
     Active Substance: ACETAMINOPHEN\CAFFEINE\PROPYPHENAZONE
     Indication: POSTOPERATIVE ANALGESIA
     Dosage: 5 GRAM, QD
     Route: 042
     Dates: start: 20130308, end: 20130309
  13. TAMSULOSIN [Concomitant]
     Active Substance: TAMSULOSIN
     Indication: BLADDER DISORDER
     Dosage: UNK
     Route: 065
     Dates: start: 20161005
  14. RINGERS SOLUTION [Concomitant]
     Active Substance: CALCIUM CHLORIDE\POTASSIUM CHLORIDE\SODIUM CHLORIDE
     Indication: FLUSHING
     Dosage: UNK
     Route: 065
     Dates: start: 20130308, end: 20130308
  15. CLEXANE [Concomitant]
     Active Substance: ENOXAPARIN SODIUM
     Indication: EMBOLISM
     Dosage: 20 MILLIGRAM, QD
     Route: 058
     Dates: start: 20130308, end: 20130313

REACTIONS (1)
  - Renal infarct [Recovered/Resolved with Sequelae]

NARRATIVE: CASE EVENT DATE: 20200819
